FAERS Safety Report 7571389-X (Version None)
Quarter: 2011Q2

REPORT INFORMATION
  Report Type: 
  Country: None (occurrence: None)
  Receive Date: 20110623
  Receipt Date: 20110623
  Transmission Date: 20111010
  Serious: Yes (Other)
  Sender: FDA-Public Use
  Company Number: None

PATIENT
  Age: 46 Year
  Sex: Male
  Weight: 120.2032 kg

DRUGS (1)
  1. VOLTAREN [Suspect]
     Indication: COSTOCHONDRITIS
     Dosage: 5 G 2XDAY CUTANEOUS
     Route: 003
     Dates: start: 20110607, end: 20110620

REACTIONS (4)
  - PULMONARY FUNCTION TEST ABNORMAL [None]
  - DIZZINESS [None]
  - BALANCE DISORDER [None]
  - DYSPNOEA [None]
